FAERS Safety Report 13650698 (Version 1)
Quarter: 2017Q2

REPORT INFORMATION
  Report Type: Spontaneous
  Country: US (occurrence: US)
  Receive Date: 20170614
  Receipt Date: 20170614
  Transmission Date: 20170830
  Serious: No
  Sender: FDA-Public Use
  Company Number: US-WEST-WARD PHARMACEUTICALS CORP.-US-H14001-16-03194

PATIENT
  Age: 62 Year
  Sex: Female

DRUGS (1)
  1. PREDNISONE. [Suspect]
     Active Substance: PREDNISONE
     Indication: HYPERSENSITIVITY
     Route: 065
     Dates: start: 201612

REACTIONS (2)
  - Plicated tongue [Not Recovered/Not Resolved]
  - Reaction to colouring [Not Recovered/Not Resolved]

NARRATIVE: CASE EVENT DATE: 201612
